FAERS Safety Report 8376277-7 (Version None)
Quarter: 2012Q2

REPORT INFORMATION
  Report Type: 
  Country: None (occurrence: None)
  Receive Date: 20120522
  Receipt Date: 20120510
  Transmission Date: 20120825
  Serious: Yes (Other)
  Sender: FDA-Public Use
  Company Number: US-SANOFI-AVENTIS-A03200904226

PATIENT
  Age: 68 Year
  Sex: Male
  Weight: 84 kg

DRUGS (16)
  1. ASPIRIN [Concomitant]
     Dosage: DOSE TEXT: 4 TABLETS
     Route: 065
  2. ALL OTHER THERAPEUTIC PRODUCTS [Concomitant]
     Route: 065
  3. VITAMIN D [Concomitant]
  4. PEPCID [Concomitant]
     Route: 065
  5. LOVAZA [Concomitant]
     Route: 065
  6. FOLIC ACID [Concomitant]
     Route: 065
  7. ASCORBIC ACID [Concomitant]
     Route: 065
  8. AMITRIPTYLINE HCL [Concomitant]
  9. AMOXAPINE [Concomitant]
     Indication: DEPRESSION
  10. CARVEDILOL [Concomitant]
  11. VYTORIN [Concomitant]
  12. DIAZEPAM [Concomitant]
  13. CLOPIDOGREL BISULFATE [Suspect]
     Indication: STENT PLACEMENT
     Dosage: UNIT DOSE: 75 MG
     Route: 048
     Dates: start: 20000101
  14. CLOPIDOGREL BISULFATE [Suspect]
     Dosage: UNIT DOSE: 75 MG
     Route: 048
     Dates: start: 20000101
  15. ZINC SULFATE [Concomitant]
     Route: 065
  16. LISINOPRIL [Concomitant]

REACTIONS (13)
  - PROSTATIC DISORDER [None]
  - MYOCARDIAL INFARCTION [None]
  - DRUG INEFFECTIVE [None]
  - HIATUS HERNIA [None]
  - CARDIAC ENZYMES INCREASED [None]
  - PULMONARY EMBOLISM [None]
  - WEIGHT INCREASED [None]
  - POLYP [None]
  - CORONARY ARTERY OCCLUSION [None]
  - ANAEMIA [None]
  - GASTROOESOPHAGEAL REFLUX DISEASE [None]
  - BLOOD PRESSURE INCREASED [None]
  - DEVICE OCCLUSION [None]
